FAERS Safety Report 7672860-2 (Version None)
Quarter: 2011Q3

REPORT INFORMATION
  Report Type: 
  Country: None (occurrence: None)
  Receive Date: 20110809
  Receipt Date: 20110728
  Transmission Date: 20111222
  Serious: Yes (Hospitalization)
  Sender: FDA-Public Use
  Company Number: US-AMGEN-USASP2011035892

PATIENT
  Age: 57 Year
  Sex: Female

DRUGS (2)
  1. ENBREL [Suspect]
     Indication: RHEUMATOID ARTHRITIS
     Dosage: 25 MG, 2 TIMES/WK
     Dates: start: 19980101, end: 20110705
  2. ENBREL [Suspect]
     Dosage: 50 MG, QWK

REACTIONS (7)
  - MIGRAINE [None]
  - BACTERAEMIA [None]
  - FATIGUE [None]
  - BILE DUCT OBSTRUCTION [None]
  - DIARRHOEA [None]
  - ABDOMINAL PAIN [None]
  - PYREXIA [None]
